FAERS Safety Report 23059511 (Version 1)
Quarter: 2023Q4

REPORT INFORMATION
  Report Type: Spontaneous
  Country: US (occurrence: US)
  Receive Date: 20231012
  Receipt Date: 20231012
  Transmission Date: 20240109
  Serious: No
  Sender: FDA-Public Use
  Company Number: US-MYLANLABS-2023M1106921

PATIENT
  Age: 95 Year
  Sex: Male

DRUGS (4)
  1. CIMETIDINE [Suspect]
     Active Substance: CIMETIDINE
     Indication: Sexual dysfunction
     Dosage: 200 MILLIGRAM, BID (200 MG ONCE AT LUNCH AND AT NIGHT)
     Route: 065
  2. CIMETIDINE [Suspect]
     Active Substance: CIMETIDINE
     Indication: Disturbance in sexual arousal
  3. CIMETIDINE [Suspect]
     Active Substance: CIMETIDINE
     Indication: Libido increased
  4. TRAZODONE [Concomitant]
     Active Substance: TRAZODONE HYDROCHLORIDE
     Dosage: UNK
     Route: 065

REACTIONS (1)
  - Off label use [Unknown]
